FAERS Safety Report 9688949 (Version 1)
Quarter: 2013Q4

REPORT INFORMATION
  Report Type: Spontaneous
  Country: CN (occurrence: CN)
  Receive Date: 20131114
  Receipt Date: 20131114
  Transmission Date: 20140711
  Serious: Yes (Hospitalization, Other)
  Sender: FDA-Public Use
  Company Number: CN-B.I. PHARMACEUTICALS,INC./RIDGEFIELD-2013-BI-35950CS

PATIENT
  Age: 30 Year
  Sex: Male

DRUGS (3)
  1. DULCOLAX [Suspect]
     Indication: CONSTIPATION
     Dosage: 5 MG
     Route: 048
     Dates: start: 201209
  2. SARIDON/COMPOUND PARACETAMOL [Concomitant]
     Indication: HEADACHE
     Dosage: 1 ANZ
     Route: 048
     Dates: start: 20131101, end: 20131103
  3. SARIDON/COMPOUND PARACETAMOL [Concomitant]
     Indication: PYREXIA

REACTIONS (8)
  - Blindness [Recovered/Resolved]
  - Loss of consciousness [Recovered/Resolved]
  - Syncope [Recovered/Resolved]
  - Abdominal pain [Recovered/Resolved]
  - Pyrexia [Recovered/Resolved]
  - Myalgia [Recovered/Resolved]
  - Diarrhoea [Not Recovered/Not Resolved]
  - Headache [Recovered/Resolved]
